FAERS Safety Report 12797401 (Version 1)
Quarter: 2016Q3

REPORT INFORMATION
  Report Type: Spontaneous
  Country: AU (occurrence: AU)
  Receive Date: 20160930
  Receipt Date: 20160930
  Transmission Date: 20161109
  Serious: Yes (Other)
  Sender: FDA-Public Use
  Company Number: PHHY2016AU132051

PATIENT
  Age: 66 Year
  Sex: Female

DRUGS (1)
  1. ACLASTA [Suspect]
     Active Substance: ZOLEDRONIC ACID
     Indication: PRODUCT USED FOR UNKNOWN INDICATION
     Dosage: UNK
     Route: 065
     Dates: end: 2014

REACTIONS (5)
  - Gingival erosion [Unknown]
  - Oral pain [Unknown]
  - Tooth loss [Unknown]
  - Gingival pain [Unknown]
  - Loose tooth [Unknown]
